FAERS Safety Report 11348073 (Version 1)
Quarter: 2015Q3

REPORT INFORMATION
  Report Type: Spontaneous
  Country: US (occurrence: US)
  Receive Date: 20150803
  Receipt Date: 20150803
  Transmission Date: 20151125
  Serious: No
  Sender: FDA-Public Use
  Company Number: US-ELI_LILLY_AND_COMPANY-US200910006684

PATIENT
  Sex: Female

DRUGS (25)
  1. ZYPREXA [Suspect]
     Active Substance: OLANZAPINE
     Dosage: 20 MG, EACH EVENING
  2. GEODON [Concomitant]
     Active Substance: ZIPRASIDONE HYDROCHLORIDE\ZIPRASIDONE MESYLATE
     Dosage: 40 MG, BID
  3. DIGOXIN. [Concomitant]
     Active Substance: DIGOXIN
     Dosage: 250 UG, QD
  4. HYDROCHLOROTHIAZIDE. [Concomitant]
     Active Substance: HYDROCHLOROTHIAZIDE
     Dosage: 25 MG, QD
  5. BENZTROPINE [Concomitant]
     Active Substance: BENZTROPINE
     Dosage: 2 MG, EACH EVENING
  6. GEODON [Concomitant]
     Active Substance: ZIPRASIDONE HYDROCHLORIDE\ZIPRASIDONE MESYLATE
     Dosage: 20 MG, BID
  7. FLUOXETINE [Concomitant]
     Active Substance: FLUOXETINE\FLUOXETINE HYDROCHLORIDE
     Dosage: 10 MG, EACH MORNING
  8. NOVOLIN R [Concomitant]
     Active Substance: INSULIN HUMAN
  9. ZYPREXA [Suspect]
     Active Substance: OLANZAPINE
     Dosage: 15 MG, EACH EVENING
  10. LOXAPINE SUCCINATE. [Concomitant]
     Active Substance: LOXAPINE SUCCINATE
     Dosage: 10 MG, EACH EVENING
  11. WARFARIN SODIUM. [Concomitant]
     Active Substance: WARFARIN SODIUM
     Dosage: UNK MG, UNK
  12. ZYPREXA [Suspect]
     Active Substance: OLANZAPINE
     Dosage: 10 MG, EACH EVENING
  13. DILTIAZEM HCL [Concomitant]
     Active Substance: DILTIAZEM HYDROCHLORIDE
     Dosage: 180 MG, BID
  14. LIPITOR [Concomitant]
     Active Substance: ATORVASTATIN CALCIUM
     Dosage: 20 MG, EACH EVENING
  15. METFORMIN HCL [Concomitant]
     Active Substance: METFORMIN HYDROCHLORIDE
     Dosage: 500 MG, BID
  16. ARICEPT [Concomitant]
     Active Substance: DONEPEZIL HYDROCHLORIDE
     Dosage: 10 MG, EACH EVENING
  17. GEODON [Concomitant]
     Active Substance: ZIPRASIDONE HYDROCHLORIDE\ZIPRASIDONE MESYLATE
     Dosage: 60 MG, BID
  18. GEODON [Concomitant]
     Active Substance: ZIPRASIDONE HYDROCHLORIDE\ZIPRASIDONE MESYLATE
     Dosage: 80 MG, BID
  19. NOVOLOG [Concomitant]
     Active Substance: INSULIN ASPART
     Dosage: 50 U, BID
     Route: 058
  20. TRAZODONE [Concomitant]
     Active Substance: TRAZODONE HYDROCHLORIDE
     Dosage: 50 MG, EACH EVENING
  21. DEPAKOTE [Concomitant]
     Active Substance: DIVALPROEX SODIUM
     Dosage: 500 MG, OTHER
  22. NOVOLIN N [Concomitant]
     Active Substance: INSULIN HUMAN
     Dosage: 30 U, BID
  23. ZYPREXA [Suspect]
     Active Substance: OLANZAPINE
     Dosage: 20 MG (TWO 10 MG TABLETS), EACH EVENING
  24. HALOPERIDOL DECANOATE. [Concomitant]
     Active Substance: HALOPERIDOL DECANOATE
     Dosage: 1 DF, 4/W
     Route: 030
  25. AVANDIA [Concomitant]
     Active Substance: ROSIGLITAZONE MALEATE
     Dosage: 4 MG, BID

REACTIONS (1)
  - General physical health deterioration [Unknown]
